FAERS Safety Report 4817312-X (Version None)
Quarter: 2005Q4

REPORT INFORMATION
  Report Type: 
  Country: None (occurrence: None)
  Receive Date: 20051031
  Receipt Date: 20051018
  Transmission Date: 20060501
  Serious: No
  Sender: FDA-Public Use
  Company Number: 32799

PATIENT
  Sex: Female

DRUGS (2)
  1. NEOMYCIN/POLYMYXIN B SULFATES/HYDROCORTISONE OTIC SUSPENSION, USP [Suspect]
     Dosage: OPHT
     Route: 047
  2. NEOMYCIN/POLYMYXIN B SULFATES/HYDROCORTISONE OPHTHALMIC SUSPENSION, US [Suspect]

REACTIONS (3)
  - ANXIETY [None]
  - DRUG DISPENSING ERROR [None]
  - PAIN [None]
